FAERS Safety Report 4312415-0 (Version None)
Quarter: 2004Q1

REPORT INFORMATION
  Report Type: 
  Country: None (occurrence: None)
  Receive Date: 20040305
  Receipt Date: 20040305
  Transmission Date: 20041129
  Serious: Yes (Hospitalization)
  Sender: FDA-Public Use
  Company Number: None

PATIENT
  Age: 49 Year
  Sex: Male

DRUGS (16)
  1. COLCHICINE [Suspect]
     Dosage: 0.6 MG BID PRN
  2. ZOSYN [Concomitant]
  3. CIPRO [Concomitant]
  4. COREG [Concomitant]
  5. ZANTAC [Concomitant]
  6. M.V.I. [Concomitant]
  7. MG OXIDE [Concomitant]
  8. FESO4 [Concomitant]
  9. NORVASC [Concomitant]
  10. ZESTRIL [Concomitant]
  11. DIGOXIN [Concomitant]
  12. SYNTHROID [Concomitant]
  13. RISPERDAL [Concomitant]
  14. WELLBUTRIN SR [Concomitant]
  15. ALLOPURINOL [Concomitant]
  16. XANAX [Concomitant]

REACTIONS (1)
  - LYMPHOPENIA [None]
